FAERS Safety Report 5210182-X (Version None)
Quarter: 2006Q4

REPORT INFORMATION
  Report Type: 
  Country: None (occurrence: None)
  Receive Date: 20061103
  Receipt Date: 20060822
  Transmission Date: 20070319
  Serious: Yes (Other)
  Sender: FDA-Public Use
  Company Number: 455303

PATIENT
  Age: 63 Year
  Sex: Female
  Weight: 58.1 kg

DRUGS (1)
  1. BONIVA [Suspect]
     Indication: OSTEOPOROSIS
     Dosage: 3MG 1 PER 3 MONTH INTRAVENOUS
     Route: 042
     Dates: start: 20060705

REACTIONS (6)
  - ERYTHEMA [None]
  - INJECTION SITE DISCOMFORT [None]
  - INJECTION SITE ERYTHEMA [None]
  - INJECTION SITE EXTRAVASATION [None]
  - INJECTION SITE SWELLING [None]
  - VEIN DISORDER [None]
